FAERS Safety Report 8147322-9 (Version None)
Quarter: 2012Q1

REPORT INFORMATION
  Report Type: 
  Country: None (occurrence: None)
  Receive Date: 20120218
  Receipt Date: 20110204
  Transmission Date: 20120608
  Serious: No
  Sender: FDA-Public Use
  Company Number: US-ALLERGAN-1101621US

PATIENT
  Age: 62 Year
  Sex: Female

DRUGS (1)
  1. BOTULINUM TOXIN TYPE A [Suspect]
     Indication: MUSCLE TWITCHING
     Dosage: UNK UNITS
     Route: 030
     Dates: start: 20110120, end: 20110120

REACTIONS (4)
  - FACIAL PARESIS [None]
  - SWELLING FACE [None]
  - FATIGUE [None]
  - SPEECH DISORDER [None]
